FAERS Safety Report 12162393 (Version 1)
Quarter: 2016Q1

REPORT INFORMATION
  Report Type: Report from Study
  Country: US (occurrence: US)
  Receive Date: 20160309
  Receipt Date: 20160309
  Transmission Date: 20160526
  Serious: Yes (Death)
  Sender: FDA-Public Use
  Company Number: US-ARIAD PHARMACEUTICALS, INC-2016US006167

PATIENT
  Age: 58 Year
  Sex: Female

DRUGS (1)
  1. ICLUSIG [Suspect]
     Active Substance: PONATINIB
     Indication: CHRONIC MYELOID LEUKAEMIA
     Dosage: 30 MG, QD
     Route: 048
     Dates: start: 20160106

REACTIONS (5)
  - Death [Fatal]
  - Skin discolouration [Unknown]
  - Dry skin [Unknown]
  - Decreased appetite [Unknown]
  - Sleep disorder [Unknown]

NARRATIVE: CASE EVENT DATE: 20160229
